FAERS Safety Report 7495013-X (Version None)
Quarter: 2011Q2

REPORT INFORMATION
  Report Type: 
  Country: None (occurrence: None)
  Receive Date: 20110520
  Receipt Date: 20110509
  Transmission Date: 20111010
  Serious: Yes (Hospitalization, Other)
  Sender: FDA-Public Use
  Company Number: US-UCBSA-028222

PATIENT
  Sex: Male
  Weight: 38.55 kg

DRUGS (6)
  1. VIMPAT [Suspect]
     Indication: CONVULSION
     Dosage: 150MG AM / 100MG PM, DOSE IS WEANING OFF
     Route: 048
     Dates: start: 20110315
  2. CLOBAZAM [Concomitant]
     Indication: CONVULSION
     Dosage: 30MG,2/1/2 ,5 TABLETS DAILY
     Route: 048
  3. VIMPAT [Suspect]
     Dates: start: 20101201
  4. SELDAMATE [Concomitant]
     Route: 048
  5. SELBATOL [Concomitant]
     Indication: CONVULSION
     Route: 048
  6. PREVACID [Concomitant]
     Indication: GASTROOESOPHAGEAL REFLUX DISEASE
     Route: 048
     Dates: start: 20101201

REACTIONS (9)
  - ODYNOPHAGIA [None]
  - VOCAL CORD PARALYSIS [None]
  - CONVULSION [None]
  - HOSPITALISATION [None]
  - LARYNX IRRITATION [None]
  - THROAT IRRITATION [None]
  - PALPITATIONS [None]
  - FATIGUE [None]
  - ERUCTATION [None]
